FAERS Safety Report 8126402-8 (Version None)
Quarter: 2012Q1

REPORT INFORMATION
  Report Type: 
  Country: None (occurrence: None)
  Receive Date: 20120209
  Receipt Date: 20120110
  Transmission Date: 20120608
  Serious: Yes (Other)
  Sender: FDA-Public Use
  Company Number: PHHY2012JP008989

PATIENT
  Sex: Female

DRUGS (6)
  1. NATEGLINIDE [Suspect]
     Indication: GLUCOSE TOLERANCE IMPAIRED
     Dosage: 90 MG
     Route: 048
     Dates: start: 20101001, end: 20110512
  2. INSULIN [Concomitant]
     Dates: start: 20110801
  3. CLONAZEPAM [Concomitant]
     Indication: EPILEPSY
     Dosage: 0.5 MG
     Dates: end: 20110512
  4. TOPIRAMATE [Concomitant]
     Dosage: 300 MG
     Dates: start: 20110101
  5. DEPAKENE [Concomitant]
     Dosage: 400 MG
     Dates: start: 20050901
  6. FOLIC ACID [Concomitant]

REACTIONS (3)
  - POLYHYDRAMNIOS [None]
  - ABNORMAL LABOUR [None]
  - MATERNAL EXPOSURE DURING PREGNANCY [None]
